FAERS Safety Report 6746989-7 (Version None)
Quarter: 2010Q2

REPORT INFORMATION
  Report Type: 
  Country: None (occurrence: None)
  Receive Date: 20100528
  Receipt Date: 20100519
  Transmission Date: 20101027
  Serious: Yes (Hospitalization)
  Sender: FDA-Public Use
  Company Number: DE-JNJFOC-20100506618

PATIENT
  Sex: Male
  Weight: 72.9 kg

DRUGS (3)
  1. INFLIXIMAB [Suspect]
     Indication: INFLAMMATORY BOWEL DISEASE
     Route: 042
     Dates: start: 20090717, end: 20100108
  2. 5-ASA [Concomitant]
     Route: 048
  3. AZATHIOPRINE SODIUM [Concomitant]

REACTIONS (2)
  - CROHN'S DISEASE [None]
  - MENTAL DISORDER [None]
